FAERS Safety Report 6109614-4 (Version None)
Quarter: 2009Q1

REPORT INFORMATION
  Report Type: 
  Country: None (occurrence: None)
  Receive Date: 20090310
  Receipt Date: 20090306
  Transmission Date: 20090719
  Serious: Yes (Life-Threatening, Other)
  Sender: FDA-Public Use
  Company Number: PHEH2008US11364

PATIENT
  Sex: Female
  Weight: 78.005 kg

DRUGS (1)
  1. RECLAST [Suspect]
     Indication: OSTEOPOROSIS
     Dosage: ONCE YEARLY
     Route: 042
     Dates: start: 20081222, end: 20081222

REACTIONS (7)
  - ABDOMINAL PAIN UPPER [None]
  - ANXIETY [None]
  - FEELING COLD [None]
  - MALAISE [None]
  - RETCHING [None]
  - TREMOR [None]
  - URINARY INCONTINENCE [None]
